FAERS Safety Report 4525968-4 (Version None)
Quarter: 2004Q4

REPORT INFORMATION
  Report Type: 
  Country: None (occurrence: None)
  Receive Date: 20041213
  Receipt Date: 20041213
  Transmission Date: 20050328
  Serious: Yes (Life-Threatening, Hospitalization)
  Sender: FDA-Public Use
  Company Number: None

PATIENT
  Age: 50 Year
  Sex: Female

DRUGS (2)
  1. LOVENOX [Suspect]
     Indication: THROMBOSIS
     Dosage: 100MG  BID  SUBCUTANEOUS
     Route: 058
     Dates: start: 20041111, end: 20041125
  2. WARFARIN  5 MG/TABLET  BARR [Suspect]
     Indication: THROMBOSIS
     Dosage: 5MG  QD  UD ORAL
     Route: 048
     Dates: start: 20041111, end: 20041120

REACTIONS (2)
  - CHEST PAIN [None]
  - PLEURAL HAEMORRHAGE [None]
